FAERS Safety Report 6420201-0 (Version None)
Quarter: 2009Q4

REPORT INFORMATION
  Report Type: 
  Country: None (occurrence: None)
  Receive Date: 20091029
  Receipt Date: 20091016
  Transmission Date: 20100525
  Serious: Yes (Hospitalization, Other)
  Sender: FDA-Public Use
  Company Number: PHHY2009BR38943

PATIENT
  Sex: Female

DRUGS (5)
  1. DIOVAN [Suspect]
     Indication: HYPERTENSION
     Dosage: 160MG 1 TABLET AT 8 00HOURS AND 1 TABLET AT 17 00HOURS
     Route: 048
  2. BUMEX [Concomitant]
     Dosage: HALF TABLET AT 18 00HOURS
     Route: 048
  3. PURAN T4 [Concomitant]
     Dosage: 100 MG 1 TABLET IN FASTING
     Route: 048
  4. CILOSTAZOL [Concomitant]
     Dosage: 50MG 1 TABLET IN FASTING AND 1 TABLET BEFORE DINNER
     Route: 048
  5. OMEPRAZOLE [Concomitant]
     Dosage: 20MG 1 TABLET IN FASTING
     Route: 048

REACTIONS (3)
  - CONVULSION [None]
  - DEMENTIA ALZHEIMER'S TYPE [None]
  - GLAUCOMA [None]
